FAERS Safety Report 9198521 (Version 1)
Quarter: 2013Q1

REPORT INFORMATION
  Report Type: Spontaneous
  Country: AR (occurrence: AR)
  Receive Date: 20130329
  Receipt Date: 20130329
  Transmission Date: 20140127
  Serious: Yes (Other)
  Sender: FDA-Public Use
  Company Number: PHHY2013AR030531

PATIENT
  Age: 82 Year
  Sex: Female

DRUGS (2)
  1. EXFORGE [Suspect]
     Indication: HYPERTENSION
     Dosage: 1 DF, (160/5 MG) DAILY
     Route: 048
  2. EXFORGE [Suspect]
     Dosage: 1 DF, (160/5 MG) DAILY
     Route: 048

REACTIONS (1)
  - Arterial occlusive disease [Recovered/Resolved]
